FAERS Safety Report 24539301 (Version 1)
Quarter: 2024Q4

REPORT INFORMATION
  Report Type: Spontaneous
  Country: CZ (occurrence: CZ)
  Receive Date: 20241023
  Receipt Date: 20241023
  Transmission Date: 20250115
  Serious: Yes (Other)
  Sender: RANBAXY
  Company Number: CZ-SUN PHARMACEUTICAL INDUSTRIES LTD-2024RR-474600

PATIENT
  Age: 54 Year
  Sex: Female

DRUGS (7)
  1. GEMCITABINE [Suspect]
     Active Substance: GEMCITABINE
     Indication: Chemotherapy
     Dosage: 6 CYCLES
     Route: 065
     Dates: start: 200710, end: 200801
  2. ERLOTINIB [Suspect]
     Active Substance: ERLOTINIB
     Indication: Chemotherapy
     Dosage: 150 MG 1X DAILY
     Route: 065
     Dates: start: 201009
  3. ERLOTINIB [Suspect]
     Active Substance: ERLOTINIB
  4. CARBOPLATIN [Suspect]
     Active Substance: CARBOPLATIN
     Indication: Chemotherapy
     Dosage: 6 CYCLES
     Route: 065
     Dates: start: 200710, end: 200801
  5. CARBOPLATIN [Suspect]
     Active Substance: CARBOPLATIN
     Dosage: 6 CYCLES
     Route: 065
     Dates: start: 201003, end: 201007
  6. PACLITAXEL [Suspect]
     Active Substance: PACLITAXEL
     Indication: Chemotherapy
     Dosage: 6 CYCLES
     Route: 065
     Dates: start: 201003, end: 201007
  7. PACLITAXEL [Suspect]
     Active Substance: PACLITAXEL

REACTIONS (2)
  - Therapeutic product effect incomplete [Unknown]
  - Disease progression [Unknown]
